FAERS Safety Report 8578084 (Version 3)
Quarter: 2014Q2

REPORT INFORMATION
  Report Type: Spontaneous
  Country: JP (occurrence: None)
  Receive Date: 20120521
  Receipt Date: 20140514
  Transmission Date: 20141212
  Serious: Yes (Hospitalization, Other)
  Sender: FDA-Public Use
  Company Number: ADR-2011-10170

PATIENT
  Age: 19 Year
  Sex: Male

DRUGS (10)
  1. GABALON [Suspect]
     Indication: QUADRIPLEGIA
     Dosage: SEE B5
  2. TEMAZEPAM [Concomitant]
  3. DANTRIUM [Concomitant]
  4. DEPAS [Concomitant]
  5. DORAL [Concomitant]
  6. GASTER [Concomitant]
  7. DAIKENCHUTO [Concomitant]
  8. RIKKUNSHITO [Concomitant]
  9. LORATADINE [Concomitant]
  10. BIOFEMIN [Concomitant]

REACTIONS (14)
  - Nausea [None]
  - Procedural site reaction [None]
  - Dermatitis [None]
  - Oesophageal obstruction [None]
  - Anuria [None]
  - Muscle tightness [None]
  - Fistula discharge [None]
  - Vomiting [None]
  - Post procedural haemorrhage [None]
  - Pain [None]
  - Hypertonia [None]
  - Emotional disorder [None]
  - Inflammation [None]
  - Dystonia [None]
